FAERS Safety Report 9216336 (Version 4)
Quarter: 2013Q3

REPORT INFORMATION
  Report Type: Spontaneous
  Country: JP (occurrence: None)
  Receive Date: 20130403
  Receipt Date: 20130806
  Transmission Date: 20140515
  Serious: Yes (Hospitalization)
  Sender: FDA-Public Use
  Company Number: JP-011339

PATIENT
  Age: 78 Year
  Sex: Male

DRUGS (9)
  1. DEGARELIX [Suspect]
     Indication: PROSTATE CANCER
     Dosage: 80 MG 1X/4 WEEKS SUBCUTANEOUS
     Route: 058
     Dates: start: 20130107, end: 20130107
  2. CASODEX [Concomitant]
     Indication: PRODUCT USED FOR UNKNOWN INDICATION
     Route: 048
  3. ZOMETA [Concomitant]
     Indication: PRODUCT USED FOR UNKNOWN INDICATION
     Route: 041
  4. LIMARMONE [Concomitant]
  5. METHYCOBAL [Concomitant]
  6. REBAMIPIDE [Concomitant]
  7. LYRICA [Concomitant]
  8. CELECOX [Concomitant]
  9. PARIET [Concomitant]

REACTIONS (2)
  - Interstitial lung disease [None]
  - Intentional drug misuse [None]
